FAERS Safety Report 19365161 (Version 1)
Quarter: 2021Q2

REPORT INFORMATION
  Report Type: Spontaneous
  Country: US (occurrence: US)
  Receive Date: 20210603
  Receipt Date: 20210603
  Transmission Date: 20210717
  Serious: No
  Sender: FDA-Public Use
  Company Number: None

PATIENT
  Age: 65 Year
  Sex: Female
  Weight: 115.21 kg

DRUGS (2)
  1. ESCITALOPRAM (ESCITALOPRAM OXALATE 20MG TAB) [Suspect]
     Active Substance: ESCITALOPRAM OXALATE
     Indication: DEPRESSION
     Route: 048
     Dates: start: 20190418, end: 20210213
  2. DULOXETINE (DULOXETINE 60MG CAPSPRINKLE, EC) [Suspect]
     Active Substance: DULOXETINE
     Indication: DEPRESSION
     Route: 048
     Dates: start: 20180818, end: 20210213

REACTIONS (10)
  - Leukocytosis [None]
  - Malaise [None]
  - Ventricular tachycardia [None]
  - Electrocardiogram QT prolonged [None]
  - Ventricular extrasystoles [None]
  - Arrhythmia supraventricular [None]
  - Blood creatinine abnormal [None]
  - Ventricular fibrillation [None]
  - Palpitations [None]
  - Hypotension [None]

NARRATIVE: CASE EVENT DATE: 20210301
